FAERS Safety Report 5390576-2 (Version None)
Quarter: 2007Q3

REPORT INFORMATION
  Report Type: 
  Country: None (occurrence: None)
  Receive Date: 20070718
  Receipt Date: 20070222
  Transmission Date: 20080115
  Serious: No
  Sender: FDA-Public Use
  Company Number: US-KINGPHARMUSA00001-K200700212

PATIENT

DRUGS (7)
  1. LEVOXYL [Suspect]
     Indication: BLOOD THYROID STIMULATING HORMONE INCREASED
     Dosage: 25 MCG, QD
     Route: 048
     Dates: start: 20061201
  2. LISINOPRIL [Concomitant]
     Indication: BLOOD CHOLESTEROL
  3. LISINOPRIL [Concomitant]
     Indication: HYPERTENSION
  4. ATENOLOL [Concomitant]
     Indication: BLOOD CHOLESTEROL
  5. ATENOLOL [Concomitant]
     Indication: HYPERTENSION
  6. COLCHICINE [Concomitant]
     Indication: PROPHYLAXIS
  7. FLUVASTATIN [Concomitant]
     Indication: HYPERTENSION

REACTIONS (1)
  - GOUT [None]
